FAERS Safety Report 5762661-4 (Version None)
Quarter: 2008Q2

REPORT INFORMATION
  Report Type: 
  Country: None (occurrence: None)
  Receive Date: 20080521
  Receipt Date: 20070202
  Transmission Date: 20081010
  Serious: Yes (Other)
  Sender: FDA-Public Use
  Company Number: 07-298

PATIENT
  Age: 60 Year
  Sex: Male

DRUGS (1)
  1. LIDOCAINE HYDROCHLORIDE W/ EPINEPHRINE [Suspect]
     Indication: LOCAL ANAESTHESIA

REACTIONS (1)
  - NERVOUS SYSTEM DISORDER [None]
